FAERS Safety Report 19132918 (Version 2)
Quarter: 2021Q3

REPORT INFORMATION
  Report Type: Spontaneous
  Country: US (occurrence: US)
  Receive Date: 20210413
  Receipt Date: 20210920
  Transmission Date: 20211014
  Serious: Yes (Other)
  Sender: FDA-Public Use
  Company Number: US-GILEAD-2021-0524844

PATIENT
  Sex: Male
  Weight: 51.25 kg

DRUGS (41)
  1. METHADONE [Concomitant]
     Active Substance: METHADONE HYDROCHLORIDE
  2. NYSTATIN. [Concomitant]
     Active Substance: NYSTATIN
  3. POLYETHYLENE GLYCOL COMPOUND [Concomitant]
  4. SUMATRIPTAN. [Concomitant]
     Active Substance: SUMATRIPTAN
  5. ISENTRESS [Concomitant]
     Active Substance: RALTEGRAVIR POTASSIUM
  6. REYATAZ [Concomitant]
     Active Substance: ATAZANAVIR SULFATE
  7. NEOMYCIN. [Concomitant]
     Active Substance: NEOMYCIN
  8. NORVIR [Concomitant]
     Active Substance: RITONAVIR
  9. NORTRIPTYLINE [Concomitant]
     Active Substance: NORTRIPTYLINE
  10. OMEPRAZOLE. [Concomitant]
     Active Substance: OMEPRAZOLE
  11. ONDANSETRON [Concomitant]
     Active Substance: ONDANSETRON
  12. SUBOXONE [Concomitant]
     Active Substance: BUPRENORPHINE HYDROCHLORIDE\NALOXONE HYDROCHLORIDE
  13. COMPLERA [Suspect]
     Active Substance: EMTRICITABINE\RILPIVIRINE HYDROCHLORIDE\TENOFOVIR DISOPROXIL FUMARATE
     Indication: HIV INFECTION
     Dosage: UNK
     Route: 048
     Dates: start: 20151002, end: 20151101
  14. ODEFSEY [Concomitant]
     Active Substance: EMTRICITABINE\RILPIVIRINE HYDROCHLORIDE\TENOFOVIR ALAFENAMIDE FUMARATE
  15. JULUCA [Concomitant]
     Active Substance: DOLUTEGRAVIR SODIUM\RILPIVIRINE HYDROCHLORIDE
  16. AMOXICILLIN. [Concomitant]
     Active Substance: AMOXICILLIN
  17. MEPRON [Concomitant]
     Active Substance: ATOVAQUONE
  18. AZITHROMYCIN ANHYDROUS. [Concomitant]
     Active Substance: AZITHROMYCIN ANHYDROUS
  19. CIPROFLOXACIN. [Concomitant]
     Active Substance: CIPROFLOXACIN
  20. CLINDAMYCIN. [Concomitant]
     Active Substance: CLINDAMYCIN
  21. ZITHROMAX [Concomitant]
     Active Substance: AZITHROMYCIN DIHYDRATE
  22. TRUVADA [Suspect]
     Active Substance: EMTRICITABINE\TENOFOVIR DISOPROXIL FUMARATE
     Indication: HIV INFECTION
     Dosage: UNK
     Route: 048
     Dates: start: 20140225, end: 20140926
  23. ACYCLOVIR [ACICLOVIR] [Concomitant]
     Active Substance: ACYCLOVIR
  24. CLOTRIMAZOLE. [Concomitant]
     Active Substance: CLOTRIMAZOLE
  25. LIDOCAINE. [Concomitant]
     Active Substance: LIDOCAINE
  26. METHYLPREDNISOLONE. [Concomitant]
     Active Substance: METHYLPREDNISOLONE
  27. PROMETHAZINE [Concomitant]
     Active Substance: PROMETHAZINE HYDROCHLORIDE
  28. ATRIPLA [Suspect]
     Active Substance: EFAVIRENZ\EMTRICITABINE\TENOFOVIR DISOPROXIL FUMARATE
     Indication: HIV INFECTION
     Dosage: UNK
     Route: 048
     Dates: start: 20130905, end: 20140117
  29. STRIBILD [Suspect]
     Active Substance: COBICISTAT\ELVITEGRAVIR\EMTRICITABINE\TENOFOVIR DISOPROXIL FUMARATE
     Indication: HIV INFECTION
     Dosage: UNK
     Route: 048
     Dates: start: 20141029, end: 20150930
  30. CEPHALEXIN [CEFALEXIN] [Concomitant]
     Active Substance: CEPHALEXIN
  31. AUGMENTIN [Concomitant]
     Active Substance: AMOXICILLIN\CLAVULANATE POTASSIUM
  32. BUPRENEX [Concomitant]
     Active Substance: BUPRENORPHINE HYDROCHLORIDE
  33. DRONABINOL. [Concomitant]
     Active Substance: DRONABINOL
  34. ERYTHROMYCIN. [Concomitant]
     Active Substance: ERYTHROMYCIN
  35. PREDNISONE. [Concomitant]
     Active Substance: PREDNISONE
  36. SULFAMETHOXAZOLE [Concomitant]
     Active Substance: SULFAMETHOXAZOLE
  37. BACITRACIN. [Concomitant]
     Active Substance: BACITRACIN
  38. DICYCLOMINE [Concomitant]
     Active Substance: DICYCLOMINE HYDROCHLORIDE
  39. HYDROCORTISONE. [Concomitant]
     Active Substance: HYDROCORTISONE
  40. METRONIDAZOLE. [Concomitant]
     Active Substance: METRONIDAZOLE
  41. NARCAN [Concomitant]
     Active Substance: NALOXONE HYDROCHLORIDE

REACTIONS (14)
  - Osteoporosis [Not Recovered/Not Resolved]
  - Anxiety [Not Recovered/Not Resolved]
  - Renal impairment [Not Recovered/Not Resolved]
  - Asthenia [Unknown]
  - Vomiting [Unknown]
  - Eating disorder [Not Recovered/Not Resolved]
  - Illness [Unknown]
  - Bone density decreased [Not Recovered/Not Resolved]
  - Pain [Not Recovered/Not Resolved]
  - Mastication disorder [Not Recovered/Not Resolved]
  - Emotional distress [Not Recovered/Not Resolved]
  - Anhedonia [Not Recovered/Not Resolved]
  - Drug intolerance [Unknown]
  - Underweight [Not Recovered/Not Resolved]

NARRATIVE: CASE EVENT DATE: 2014
